FAERS Safety Report 9346569 (Version 1)
Quarter: 2013Q2

REPORT INFORMATION
  Report Type: Spontaneous
  Country: US (occurrence: US)
  Receive Date: 20130613
  Receipt Date: 20130613
  Transmission Date: 20140414
  Serious: Yes (Other)
  Sender: FDA-Public Use
  Company Number: US-BAYER-2013-070840

PATIENT
  Age: 33 Year
  Sex: Female

DRUGS (10)
  1. YASMIN [Suspect]
  2. PRENATAL VITAMINS [Concomitant]
     Dosage: UNK
     Dates: start: 20061229
  3. PROGESTERONE [Concomitant]
     Dosage: UNK
     Dates: start: 20061229
  4. GANIRELIX [Concomitant]
  5. ZITHROMAX [Concomitant]
  6. CRINONE [Concomitant]
  7. DEXAMETHASON [DEXAMETHASONE] [Concomitant]
     Dosage: UNK
     Dates: start: 20061229
  8. MIDAZOLAM [Concomitant]
  9. PROPOFOL [Concomitant]
  10. CITRICAL [Concomitant]
     Route: 051

REACTIONS (1)
  - Deep vein thrombosis [None]
